FAERS Safety Report 13800240 (Version 1)
Quarter: 2017Q3

REPORT INFORMATION
  Report Type: Spontaneous
  Country: US (occurrence: US)
  Receive Date: 20170727
  Receipt Date: 20170727
  Transmission Date: 20171127
  Serious: No
  Sender: FDA-Public Use
  Company Number: US-JNJFOC-20170623091

PATIENT
  Age: 59 Year
  Sex: Female
  Weight: 76.2 kg

DRUGS (2)
  1. WOMENS ROGAINE [Suspect]
     Active Substance: MINOXIDIL
     Route: 061
  2. WOMENS ROGAINE [Suspect]
     Active Substance: MINOXIDIL
     Indication: ALOPECIA
     Dosage: AT NIGHT, THE AMOUNT IT SAYS ON THE APPLICATOR
     Route: 061
     Dates: end: 20170618

REACTIONS (3)
  - Skin irritation [Recovering/Resolving]
  - Pruritus [Recovering/Resolving]
  - Inappropriate schedule of drug administration [Recovering/Resolving]
